FAERS Safety Report 4781187-8 (Version None)
Quarter: 2005Q3

REPORT INFORMATION
  Report Type: 
  Country: None (occurrence: None)
  Receive Date: 20050914
  Receipt Date: 20050117
  Transmission Date: 20060218
  Serious: Yes (Death, Hospitalization)
  Sender: FDA-Public Use
  Company Number: 163-20785-05010297

PATIENT
  Age: 90 Year
  Sex: Female

DRUGS (6)
  1. THALOMID [Suspect]
     Indication: MULTIPLE MYELOMA
     Dosage: 100 MG, DAILY, ORAL
     Route: 048
     Dates: start: 20040930, end: 20050116
  2. ALTACE [Concomitant]
  3. TOPROL-XL [Concomitant]
  4. LASIX [Concomitant]
  5. SKELAXIN [Concomitant]
  6. PRAVACHOL [Concomitant]

REACTIONS (33)
  - ANAEMIA [None]
  - ANOREXIA [None]
  - BACK PAIN [None]
  - BLOOD ALBUMIN DECREASED [None]
  - BLOOD CALCIUM DECREASED [None]
  - BLOOD CREATININE INCREASED [None]
  - BLOOD IMMUNOGLOBULIN G INCREASED [None]
  - CANDIDIASIS [None]
  - CARDIAC FAILURE CONGESTIVE [None]
  - CARDIAC MURMUR [None]
  - CHEST DISCOMFORT [None]
  - DEATH [None]
  - DECREASED APPETITE [None]
  - DIFFICULTY IN WALKING [None]
  - DISEASE PROGRESSION [None]
  - DYSPHAGIA [None]
  - DYSPNOEA [None]
  - HYPERVISCOSITY SYNDROME [None]
  - HYPONATRAEMIA [None]
  - HYPOTENSION [None]
  - LABORATORY TEST ABNORMAL [None]
  - MALAISE [None]
  - OEDEMA PERIPHERAL [None]
  - OSTEOLYSIS [None]
  - PATHOLOGICAL FRACTURE [None]
  - PRODUCTIVE COUGH [None]
  - PROTEIN TOTAL INCREASED [None]
  - PULSE ABNORMAL [None]
  - RALES [None]
  - RESPIRATORY FAILURE [None]
  - THROMBOCYTOPENIA [None]
  - WEIGHT DECREASED [None]
  - WHITE BLOOD CELL COUNT INCREASED [None]
